FAERS Safety Report 10482172 (Version 2)
Quarter: 2014Q4

REPORT INFORMATION
  Report Type: Spontaneous
  Country: US (occurrence: US)
  Receive Date: 20140929
  Receipt Date: 20141030
  Transmission Date: 20150528
  Serious: Yes (Other)
  Sender: FDA-Public Use
  Company Number: US-BRISTOL-MYERS SQUIBB COMPANY-21435516

PATIENT
  Age: 87 Year
  Sex: Female

DRUGS (1)
  1. ABILIFY [Suspect]
     Active Substance: ARIPIPRAZOLE
     Indication: DEPRESSION
     Dosage: ON 20-SEP-2014. SHE NO LONGER TAKES ABILIFY. DISCONTINUED.

REACTIONS (3)
  - Trismus [Recovering/Resolving]
  - Insomnia [Unknown]
  - Asocial behaviour [Unknown]
